FAERS Safety Report 12696375 (Version 1)
Quarter: 2016Q3

REPORT INFORMATION
  Report Type: Spontaneous
  Country: CA (occurrence: CA)
  Receive Date: 20160830
  Receipt Date: 20160830
  Transmission Date: 20161109
  Serious: Yes (Other)
  Sender: FDA-Public Use
  Company Number: CA-ROCHE-1822103

PATIENT
  Age: 52 Year
  Sex: Male

DRUGS (1)
  1. ZELBORAF [Suspect]
     Active Substance: VEMURAFENIB
     Indication: MALIGNANT MELANOMA
     Dosage: 1.0 DOSAGE FORMS FILM COATED TABLET
     Route: 048

REACTIONS (3)
  - Liver disorder [Unknown]
  - Constipation [Unknown]
  - Faeces discoloured [Unknown]
